FAERS Safety Report 18190329 (Version 1)
Quarter: 2020Q3

REPORT INFORMATION
  Report Type: Spontaneous
  Country: US (occurrence: US)
  Receive Date: 20200825
  Receipt Date: 20200825
  Transmission Date: 20201103
  Serious: No
  Sender: FDA-Public Use
  Company Number: NVSC2020US231084

PATIENT

DRUGS (1)
  1. MAYZENT [Suspect]
     Active Substance: SIPONIMOD
     Indication: PRODUCT USED FOR UNKNOWN INDICATION
     Route: 065

REACTIONS (8)
  - Pruritus [Unknown]
  - Myalgia [Unknown]
  - Headache [Unknown]
  - Inflammation [Unknown]
  - Alopecia [Unknown]
  - Epistaxis [Unknown]
  - Pain [Unknown]
  - Nail disorder [Unknown]
